FAERS Safety Report 17012400 (Version 7)
Quarter: 2020Q1

REPORT INFORMATION
  Report Type: Report from Study
  Country: US (occurrence: US)
  Receive Date: 20191108
  Receipt Date: 20200223
  Transmission Date: 20200409
  Serious: Yes (Hospitalization)
  Sender: FDA-Public Use
  Company Number: US-EXELIXIS-XL18419024984

PATIENT

DRUGS (4)
  1. DURVALUMAB. [Suspect]
     Active Substance: DURVALUMAB
     Indication: METASTASES TO LIVER
  2. XL184 [Suspect]
     Active Substance: CABOZANTINIB
     Indication: COLON CANCER
     Dosage: 40 MG, QD
     Route: 048
     Dates: start: 20190812, end: 20191020
  3. XL184 [Suspect]
     Active Substance: CABOZANTINIB
     Dosage: 20 MG, QD
     Route: 048
     Dates: end: 20191201
  4. DURVALUMAB. [Suspect]
     Active Substance: DURVALUMAB
     Indication: COLON CANCER
     Dosage: 1500 MG Q28D
     Route: 042
     Dates: start: 20190812, end: 20191104

REACTIONS (12)
  - Fall [Unknown]
  - Feeling of body temperature change [Unknown]
  - Fatigue [Not Recovered/Not Resolved]
  - Device occlusion [Unknown]
  - Failure to thrive [Unknown]
  - Microcytic anaemia [Recovering/Resolving]
  - Back pain [Unknown]
  - Hyponatraemia [Recovering/Resolving]
  - Delirium [Not Recovered/Not Resolved]
  - Hypovolaemia [Unknown]
  - Bile duct obstruction [Unknown]
  - Hyperbilirubinaemia [Unknown]

NARRATIVE: CASE EVENT DATE: 20191030
